FAERS Safety Report 24023765 (Version 3)
Quarter: 2024Q3

REPORT INFORMATION
  Report Type: Report from Study
  Country: CN (occurrence: CN)
  Receive Date: 20240627
  Receipt Date: 20240710
  Transmission Date: 20241017
  Serious: No
  Sender: ROCHE
  Company Number: CN-ROCHE-3372644

PATIENT
  Age: 56 Year
  Sex: Female

DRUGS (3)
  1. ALECENSA [Suspect]
     Active Substance: ALECTINIB HYDROCHLORIDE
     Indication: Non-small cell lung cancer metastatic
     Dosage: CAPSULES, 224 CAPSULES PER BOX
     Route: 048
     Dates: start: 20230424
  2. ALECENSA [Suspect]
     Active Substance: ALECTINIB HYDROCHLORIDE
     Dosage: TAKE TWO CAPSULES AT A TIME
     Route: 048
  3. ALECENSA [Suspect]
     Active Substance: ALECTINIB HYDROCHLORIDE
     Route: 048

REACTIONS (5)
  - Lymphadenopathy [Unknown]
  - Decreased appetite [Unknown]
  - Radiation skin injury [Unknown]
  - Lymphadenopathy [Unknown]
  - Hepatic function abnormal [Recovering/Resolving]
